FAERS Safety Report 9200569 (Version 1)
Quarter: 2013Q1

REPORT INFORMATION
  Report Type: Report from Study
  Country: AR (occurrence: AR)
  Receive Date: 20130329
  Receipt Date: 20130329
  Transmission Date: 20140127
  Serious: Yes (Hospitalization)
  Sender: FDA-Public Use
  Company Number: AR-PFIZER INC-2013087737

PATIENT
  Age: 60 Year
  Sex: Female

DRUGS (3)
  1. METHYLPREDNISOLONE SODIUM SUCCINATE [Suspect]
     Dosage: UNK
     Dates: start: 20070608
  2. BELATACEPT [Suspect]
     Indication: RENAL TRANSPLANT
     Dosage: 260 MG, UNK
     Route: 042
     Dates: start: 20100610
  3. MYCOPHENOLATE SODIUM [Suspect]
     Dosage: UNK
     Dates: start: 20110803

REACTIONS (2)
  - Localised infection [Recovered/Resolved]
  - Tuberculosis gastrointestinal [Recovering/Resolving]
